FAERS Safety Report 22652448 (Version 1)
Quarter: 2023Q2

REPORT INFORMATION
  Report Type: Report from Study
  Country: KR (occurrence: KR)
  Receive Date: 20230629
  Receipt Date: 20230629
  Transmission Date: 20230721
  Serious: Yes (Death, Hospitalization, Other)
  Sender: FDA-Public Use
  Company Number: KR-CELLTRION INC.-2023KR011303

PATIENT

DRUGS (20)
  1. INVESTIGATIONAL BIOSIMILARS [Suspect]
     Active Substance: INVESTIGATIONAL BIOSIMILARS
     Indication: Chemotherapy
     Dosage: 268.2MG IV Q3WK
     Route: 042
     Dates: start: 20230403, end: 20230517
  2. NERATINIB [Suspect]
     Active Substance: NERATINIB
     Indication: Product used for unknown indication
     Dosage: 80 MG, QD
     Route: 065
  3. OXYCODONE [Concomitant]
     Active Substance: OXYCODONE
     Indication: Neck pain
     Dosage: 2 TAB, PRN
     Route: 048
     Dates: start: 20230118
  4. ACETAMINOPHEN [Concomitant]
     Active Substance: ACETAMINOPHEN
     Indication: Neck pain
     Dosage: 650 MG, PRN
     Route: 048
     Dates: start: 20230321
  5. FENTANYL [Concomitant]
     Active Substance: FENTANYL
     Indication: Neck pain
     Dosage: 200 MCG, PRN
     Route: 048
     Dates: start: 20230319
  6. MEGESTROL [Concomitant]
     Active Substance: MEGESTROL
     Indication: Decreased appetite
     Dosage: 40 MG, PRN
     Route: 048
     Dates: start: 20230322
  7. MEGESTROL [Concomitant]
     Active Substance: MEGESTROL
     Indication: Prophylaxis
  8. MAGNESIUM OXIDE [Concomitant]
     Active Substance: MAGNESIUM OXIDE
     Indication: Constipation prophylaxis
     Dosage: 1 CAP, PRN
     Route: 048
     Dates: start: 20230517
  9. DULACKHAN EASY [Concomitant]
     Indication: Constipation prophylaxis
     Dosage: 15 ML, PRN
     Route: 048
     Dates: start: 20230517
  10. WINUF [Concomitant]
     Indication: Pneumonia
     Dosage: 1 BAG, QD
     Route: 042
     Dates: start: 20230527
  11. AMBROXOL [Concomitant]
     Active Substance: AMBROXOL
     Indication: Pneumonia
     Dosage: 1 AMP, QD
     Route: 042
     Dates: start: 20230527
  12. CEFTRIAXONE SODIUM [Concomitant]
     Active Substance: CEFTRIAXONE SODIUM
     Indication: Pneumonia
     Dosage: 2 G, QD
     Route: 042
     Dates: start: 20230527
  13. TROLAC [Concomitant]
     Indication: Pain prophylaxis
     Dosage: 1 MG, QD
     Route: 042
     Dates: start: 20230527
  14. NALOXONE HYDROCHLORIDE\OXYCODONE HYDROCHLORIDE [Concomitant]
     Active Substance: NALOXONE HYDROCHLORIDE\OXYCODONE HYDROCHLORIDE
     Indication: Neck pain
     Dosage: TARGIN PR 40/20MG 1TAB
     Route: 048
     Dates: start: 20230206
  15. NALOXONE HYDROCHLORIDE\OXYCODONE HYDROCHLORIDE [Concomitant]
     Active Substance: NALOXONE HYDROCHLORIDE\OXYCODONE HYDROCHLORIDE
     Dosage: TARGIN PR 20/10MG 1TAB
     Route: 048
     Dates: start: 20230319
  16. TAZOPERAN [Concomitant]
     Indication: Pneumonia
     Dosage: 4.5 G 1 VIAL
     Route: 042
     Dates: start: 20230619, end: 20230620
  17. MORPHINE SULFATE [Concomitant]
     Active Substance: MORPHINE SULFATE
     Indication: Pain
     Dosage: 5 MG, QD 1 VIAL
     Route: 042
     Dates: start: 20230619, end: 20230620
  18. MORPHINE SULFATE [Concomitant]
     Active Substance: MORPHINE SULFATE
     Dosage: 100 MG, QD 1 VIAL
     Route: 042
     Dates: start: 20230610, end: 20230620
  19. OLIMEL E [Concomitant]
     Active Substance: AMINO ACIDS\DEXTROSE\ELECTROLYTES NOS\SOYBEAN OIL
     Indication: Nutritional supplementation
     Dosage: 1000 ML, QD 1 BAG
     Route: 042
     Dates: start: 20230620, end: 20230620
  20. DEXTROSE + NAK [Concomitant]
     Dosage: 1L 1BAG QD
     Route: 042
     Dates: start: 20230619, end: 20230619

REACTIONS (4)
  - Disease progression [Fatal]
  - Dyspnoea [Fatal]
  - Pneumonia [Not Recovered/Not Resolved]
  - Vomiting [Unknown]

NARRATIVE: CASE EVENT DATE: 20230508
